FAERS Safety Report 5535141-9 (Version None)
Quarter: 2007Q4

REPORT INFORMATION
  Report Type: 
  Country: None (occurrence: None)
  Receive Date: 20071204
  Receipt Date: 20071128
  Transmission Date: 20080405
  Serious: Yes (Hospitalization, Other)
  Sender: FDA-Public Use
  Company Number: 07-002341

PATIENT
  Age: 54 Year
  Sex: Female
  Weight: 54.4 kg

DRUGS (9)
  1. ESTRACE [Suspect]
     Indication: GYNAECOLOGICAL EXAMINATION
     Dosage: 0.1% PRIOR TO INTERNAL PELVIC EXAM, VAGINAL
     Route: 067
     Dates: start: 19890101, end: 20020101
  2. OS-CAL D (CALCIUM CARBONATE, COLECALCIFEROL) [Concomitant]
  3. FLOVENT HFA (FLUTICASONE PROPIONATE) INHALER [Concomitant]
  4. ASPIRIN [Concomitant]
  5. METOPROLOL TARTRATE [Concomitant]
  6. CENTRUM SILVER /01292501/ (ASCORBIC ACID, CALCIUM, MINERALS NOS, RETIN [Concomitant]
  7. SIMVASTATIN [Concomitant]
  8. PLAVIX [Concomitant]
  9. PROMETH WITH CODINE [Concomitant]

REACTIONS (3)
  - ANAPHYLACTIC SHOCK [None]
  - HEAD INJURY [None]
  - LOSS OF CONSCIOUSNESS [None]
